FAERS Safety Report 23213846 (Version 2)
Quarter: 2024Q1

REPORT INFORMATION
  Report Type: Spontaneous
  Country: US (occurrence: US)
  Receive Date: 20231121
  Receipt Date: 20240305
  Transmission Date: 20240410
  Serious: Yes (Other)
  Sender: FDA-Public Use
  Company Number: US-TEVA-2023-US-2946946

PATIENT
  Age: 59 Year
  Sex: Male

DRUGS (2)
  1. METHOTREXATE [Suspect]
     Active Substance: METHOTREXATE
     Indication: Metastatic cutaneous Crohn^s disease
     Dosage: DOSAGE TEXT: 15MG WEEKLY FOR 84 MONTHS
     Route: 065
  2. METHOTREXATE [Suspect]
     Active Substance: METHOTREXATE
     Indication: Metastatic cutaneous Crohn^s disease
     Dosage: DOSAGE TEXT: DOSE REDUCED
     Route: 065

REACTIONS (1)
  - Rebound effect [Unknown]
